FAERS Safety Report 8880632 (Version 2)
Quarter: 2012Q4

REPORT INFORMATION
  Report Type: Report from Study
  Country: US (occurrence: US)
  Receive Date: 20121101
  Receipt Date: 20121107
  Transmission Date: 20130627
  Serious: Yes (Hospitalization)
  Sender: FDA-Public Use
  Company Number: US-ACTELION-A-NJ2012-73654

PATIENT
  Age: 59 Year
  Sex: Female

DRUGS (3)
  1. VENTAVIS [Suspect]
     Indication: PULMONARY ARTERIAL HYPERTENSION
     Dosage: 3-4 times daily
     Route: 055
     Dates: start: 20101021
  2. SILDENAFIL [Concomitant]
  3. PLAVIX [Concomitant]

REACTIONS (1)
  - Pulmonary oedema [Recovered/Resolved]
